FAERS Safety Report 12633303 (Version 2)
Quarter: 2016Q3

REPORT INFORMATION
  Report Type: Spontaneous
  Country: US (occurrence: US)
  Receive Date: 20160808
  Receipt Date: 20160808
  Transmission Date: 20161109
  Serious: No
  Sender: FDA-Public Use
  Company Number: US-BEH-2016060449

PATIENT
  Sex: Female
  Weight: 54 kg

DRUGS (31)
  1. LIOTHYRONINE [Concomitant]
     Active Substance: LIOTHYRONINE
  2. VITAMIN D [Concomitant]
     Active Substance: CHOLECALCIFEROL
  3. ZIPSOR [Concomitant]
     Active Substance: DICLOFENAC POTASSIUM
  4. BIOTIN [Concomitant]
     Active Substance: BIOTIN
  5. ACETAMINOPHEN. [Concomitant]
     Active Substance: ACETAMINOPHEN
  6. ASPIRIN. [Concomitant]
     Active Substance: ASPIRIN
  7. CALCIUM [Concomitant]
     Active Substance: CALCIUM
  8. BENADRYL [Concomitant]
     Active Substance: DIPHENHYDRAMINE HYDROCHLORIDE
  9. PROMETHAZINE [Concomitant]
     Active Substance: PROMETHAZINE\PROMETHAZINE HYDROCHLORIDE
  10. GAS-X [Concomitant]
     Active Substance: DIMETHICONE
  11. DICYCLOMINE [Concomitant]
     Active Substance: DICYCLOMINE HYDROCHLORIDE
  12. PROPAFENONE. [Concomitant]
     Active Substance: PROPAFENONE
  13. AZELASTINE [Concomitant]
     Active Substance: AZELASTINE
  14. COLACE [Concomitant]
     Active Substance: DOCUSATE SODIUM
  15. DIPHENHYDRAMINE. [Concomitant]
     Active Substance: DIPHENHYDRAMINE
  16. ADVAIR HFA [Concomitant]
     Active Substance: FLUTICASONE PROPIONATE\SALMETEROL XINAFOATE
  17. TIROSINT [Concomitant]
     Active Substance: LEVOTHYROXINE SODIUM
  18. MAGNESIUM [Concomitant]
     Active Substance: MAGNESIUM
  19. QVAR [Concomitant]
     Active Substance: BECLOMETHASONE DIPROPIONATE
  20. LIDOCAINE. [Concomitant]
     Active Substance: LIDOCAINE
  21. RANITIDINE. [Concomitant]
     Active Substance: RANITIDINE
  22. SELENIUM [Concomitant]
     Active Substance: SELENIUM
  23. PROBIOTIC [Concomitant]
     Active Substance: PROBIOTICS NOS
  24. PANTOPRAZOLE [Concomitant]
     Active Substance: PANTOPRAZOLE SODIUM
  25. XOPENEX [Concomitant]
     Active Substance: LEVALBUTEROL HYDROCHLORIDE
  26. HIZENTRA [Suspect]
     Active Substance: HUMAN IMMUNOGLOBULIN G
     Indication: IMMUNODEFICIENCY COMMON VARIABLE
     Route: 058
     Dates: start: 20151228
  27. EPIPEN [Concomitant]
     Active Substance: EPINEPHRINE
  28. LEVALBUTEROL. [Concomitant]
     Active Substance: LEVALBUTEROL
  29. ZINC [Concomitant]
     Active Substance: ZINC\ZINC CHLORIDE
  30. ZYRTEC [Concomitant]
     Active Substance: CETIRIZINE HYDROCHLORIDE
  31. ZAFIRLUKAST. [Concomitant]
     Active Substance: ZAFIRLUKAST

REACTIONS (3)
  - Fatigue [Unknown]
  - Abdominal discomfort [Unknown]
  - Influenza like illness [Unknown]
